FAERS Safety Report 25120995 (Version 1)
Quarter: 2025Q1

REPORT INFORMATION
  Report Type: Spontaneous
  Country: JP (occurrence: JP)
  Receive Date: 20250326
  Receipt Date: 20250326
  Transmission Date: 20250409
  Serious: Yes (Other)
  Sender: TAKEDA
  Company Number: JP-TAKEDA-2025TUS030601

PATIENT
  Age: 21 Year
  Sex: Male

DRUGS (3)
  1. LIALDA [Suspect]
     Active Substance: MESALAMINE
     Indication: Colitis ulcerative
     Dosage: 4800 MILLIGRAM, QD
     Dates: start: 202401
  2. Cortiment [Concomitant]
     Indication: Colitis ulcerative
  3. Cortiment [Concomitant]

REACTIONS (4)
  - Haematochezia [Recovering/Resolving]
  - C-reactive protein increased [Recovering/Resolving]
  - Inflammatory marker increased [Recovering/Resolving]
  - Anaemia [Unknown]

NARRATIVE: CASE EVENT DATE: 20241101
